FAERS Safety Report 7106474-X (Version None)
Quarter: 2010Q4

REPORT INFORMATION
  Report Type: 
  Country: None (occurrence: None)
  Receive Date: 20101116
  Receipt Date: 20101108
  Transmission Date: 20110411
  Serious: Yes (Other)
  Sender: FDA-Public Use
  Company Number: SE-PFIZER INC-2010147114

PATIENT
  Age: 27 Year
  Sex: Female

DRUGS (1)
  1. ATARAX [Suspect]

REACTIONS (1)
  - PHARYNGEAL OEDEMA [None]
